FAERS Safety Report 16320333 (Version 1)
Quarter: 2019Q2

REPORT INFORMATION
  Report Type: Spontaneous
  Country: US (occurrence: US)
  Receive Date: 20190516
  Receipt Date: 20190516
  Transmission Date: 20190711
  Serious: No
  Sender: FDA-Public Use
  Company Number: US-PFIZER INC-2019207994

PATIENT
  Age: 58 Year
  Sex: Female
  Weight: 124 kg

DRUGS (1)
  1. ADVIL [Suspect]
     Active Substance: IBUPROFEN
     Indication: PAIN
     Dosage: 200 MG, 3X/DAY (ONE TABLET EVERY 8 HOURS)

REACTIONS (1)
  - Drug ineffective [Unknown]
